FAERS Safety Report 5405155-8 (Version None)
Quarter: 2007Q3

REPORT INFORMATION
  Report Type: 
  Country: None (occurrence: None)
  Receive Date: 20070803
  Receipt Date: 20070802
  Transmission Date: 20080115
  Serious: Yes (Death, Hospitalization)
  Sender: FDA-Public Use
  Company Number: GB-BRISTOL-MYERS SQUIBB COMPANY-13803341

PATIENT
  Age: 77 Year
  Sex: Male

DRUGS (4)
  1. CETUXIMAB [Suspect]
     Indication: COLORECTAL CANCER METASTATIC
     Route: 042
     Dates: start: 20061103, end: 20070510
  2. OXALIPLATIN [Suspect]
     Indication: COLORECTAL CANCER METASTATIC
     Route: 042
     Dates: start: 20061103, end: 20070503
  3. CAPECITABINE [Suspect]
     Indication: COLORECTAL CANCER METASTATIC
     Route: 042
     Dates: start: 20061103, end: 20061227
  4. FLUOROURACIL [Suspect]
     Indication: COLORECTAL CANCER METASTATIC
     Route: 042
     Dates: start: 20070118, end: 20070503

REACTIONS (17)
  - ASPIRATION [None]
  - CARDIAC ARREST [None]
  - DEHYDRATION [None]
  - DIARRHOEA [None]
  - DUODENAL ULCER [None]
  - ELECTROCARDIOGRAM ST SEGMENT ELEVATION [None]
  - ELECTROMECHANICAL DISSOCIATION [None]
  - HAEMORRHAGE [None]
  - HYPOTENSION [None]
  - HYPOVOLAEMIA [None]
  - LOWER RESPIRATORY TRACT INFECTION [None]
  - METABOLIC ACIDOSIS [None]
  - PNEUMONIA [None]
  - SKIN TOXICITY [None]
  - SYNCOPE [None]
  - VENTRICULAR FIBRILLATION [None]
  - VENTRICULAR TACHYCARDIA [None]
